FAERS Safety Report 5619683-3 (Version None)
Quarter: 2008Q1

REPORT INFORMATION
  Report Type: 
  Country: None (occurrence: None)
  Receive Date: 20080208
  Receipt Date: 20071112
  Transmission Date: 20080703
  Serious: No
  Sender: FDA-Public Use
  Company Number: A0686904A

PATIENT
  Sex: Male

DRUGS (1)
  1. ALTABAX [Suspect]
     Indication: INFECTED CYST
     Route: 061

REACTIONS (2)
  - DERMATITIS CONTACT [None]
  - ERYTHEMA [None]
